FAERS Safety Report 21874544 (Version 1)
Quarter: 2023Q1

REPORT INFORMATION
  Report Type: Spontaneous
  Country: US (occurrence: None)
  Receive Date: 20230117
  Receipt Date: 20230117
  Transmission Date: 20230418
  Serious: Yes (Other)
  Sender: FDA-Public Use
  Company Number: 2023A005163

PATIENT
  Sex: Male
  Weight: 81.6 kg

DRUGS (1)
  1. FARXIGA [Suspect]
     Active Substance: DAPAGLIFLOZIN PROPANEDIOL
     Route: 048

REACTIONS (6)
  - Pharyngitis [Recovered/Resolved]
  - Laryngitis [Recovered/Resolved]
  - Speech disorder [Recovered/Resolved]
  - Sinus disorder [Recovered/Resolved]
  - Nasal disorder [Recovered/Resolved]
  - Illness [Unknown]
